FAERS Safety Report 8318962 (Version 2)
Quarter: 2019Q2

REPORT INFORMATION
  Report Type: Spontaneous
  Country: US (occurrence: US)
  Receive Date: 20120103
  Receipt Date: 20190620
  Transmission Date: 20190711
  Serious: Yes (Hospitalization)
  Sender: FDA-Public Use
  Company Number: US-PFIZER INC-2011314761

PATIENT
  Age: 10 Year
  Sex: Male

DRUGS (11)
  1. RISPERIDONE. [Interacting]
     Active Substance: RISPERIDONE
     Dosage: 4 MG, 1X/DAY [INCREASED TO 4MG AT BEDTIME 1 WEEK PRIOR TO STARTING LITHIUM]
     Route: 048
  2. CLONIDINE. [Interacting]
     Active Substance: CLONIDINE
     Dosage: 0.1 MG, 3X/DAY[INCREASED TO 0.1MG 3-TIMES DAILY 2 WEEKS PRIOR TO STARTING LITHIUM]
     Route: 048
  3. LITHIUM. [Interacting]
     Active Substance: LITHIUM
     Indication: MANIA
     Dosage: 150 MG, 1X/DAY [150MG EVERY EVENING]
     Route: 048
  4. CLONIDINE. [Interacting]
     Active Substance: CLONIDINE
     Dosage: UNK
     Route: 048
  5. LITHIUM. [Interacting]
     Active Substance: LITHIUM
     Dosage: 600MG IN THE MORNING AND 900MG AT NIGHT
     Route: 048
  6. MELATONIN [Interacting]
     Active Substance: MELATONIN
     Dosage: 3 MG, 1X/DAY [INCREASED TO 3MG AT BEDTIME 1 WEEK PRIOR TO STARTING LITHIUM]
     Route: 048
  7. RISPERIDONE. [Interacting]
     Active Substance: RISPERIDONE
     Dosage: UNK
     Route: 048
  8. FAMOTIDINE. [Suspect]
     Active Substance: FAMOTIDINE
     Dosage: 20 MG, 2X/DAY
     Route: 048
  9. LITHIUM. [Interacting]
     Active Substance: LITHIUM
     Dosage: 600 MG, 2X/DAY
     Route: 048
  10. LITHIUM. [Interacting]
     Active Substance: LITHIUM
     Dosage: 900 MG, 2X/DAY
     Route: 048
  11. MELATONIN [Interacting]
     Active Substance: MELATONIN
     Dosage: UNK
     Route: 048

REACTIONS (3)
  - Drug interaction [Recovered/Resolved]
  - Dysphemia [Recovered/Resolved]
  - Condition aggravated [Recovered/Resolved]
